FAERS Safety Report 5678566-3 (Version None)
Quarter: 2008Q1

REPORT INFORMATION
  Report Type: 
  Country: None (occurrence: None)
  Receive Date: 20080325
  Receipt Date: 20080319
  Transmission Date: 20080703
  Serious: Yes (Death, Hospitalization)
  Sender: FDA-Public Use
  Company Number: PHHY2008JP03592

PATIENT
  Age: 69 Year
  Sex: Female

DRUGS (1)
  1. GLEEVEC [Suspect]

REACTIONS (4)
  - LYMPHADENOPATHY [None]
  - MULTI-ORGAN FAILURE [None]
  - NAUSEA [None]
  - PLATELET COUNT DECREASED [None]
